FAERS Safety Report 14270911 (Version 2)
Quarter: 2017Q4

REPORT INFORMATION
  Report Type: Spontaneous
  Country: AT (occurrence: AT)
  Receive Date: 20171211
  Receipt Date: 20171222
  Transmission Date: 20180321
  Serious: No
  Sender: FDA-Public Use
  Company Number: AT-ASTRAZENECA-2017SF24668

PATIENT
  Age: 76 Year
  Sex: Male
  Weight: 98 kg

DRUGS (2)
  1. EKLIRA [Suspect]
     Active Substance: ACLIDINIUM BROMIDE
     Dosage: UNKNOWN DOSE
     Route: 055
     Dates: start: 201403
  2. DUAKLIR [Suspect]
     Active Substance: ACLIDINIUM BROMIDE\FORMOTEROL FUMARATE
     Dosage: UNKNOWN DOSE
     Route: 055
     Dates: start: 201510

REACTIONS (3)
  - Infection [Unknown]
  - Foot fracture [Unknown]
  - Ligament rupture [Unknown]
